FAERS Safety Report 4582882-6 (Version None)
Quarter: 2005Q1

REPORT INFORMATION
  Report Type: 
  Country: None (occurrence: None)
  Receive Date: 20050127
  Receipt Date: 20040914
  Transmission Date: 20050727
  Serious: No
  Sender: FDA-Public Use
  Company Number: USA040978122

PATIENT
  Age: 15 Year
  Sex: Male
  Weight: 73 kg

DRUGS (4)
  1. STRATTERA [Suspect]
     Indication: ATTENTION DEFICIT/HYPERACTIVITY DISORDER
     Dosage: 25 MG DAY
     Dates: start: 20040905
  2. ZYRTEC [Concomitant]
  3. VITAMINS [Concomitant]
  4. MULTIVITAMINS WITH HERBS [Concomitant]

REACTIONS (5)
  - FEELING ABNORMAL [None]
  - MOTION SICKNESS [None]
  - PHOTOPHOBIA [None]
  - STOMACH DISCOMFORT [None]
  - VOMITING [None]
